FAERS Safety Report 12194190 (Version 1)
Quarter: 2016Q1

REPORT INFORMATION
  Report Type: Spontaneous
  Country: GB (occurrence: GB)
  Receive Date: 20160321
  Receipt Date: 20160321
  Transmission Date: 20160526
  Serious: Yes (Other)
  Sender: FDA-Public Use
  Company Number: GB-TEVA-644641ACC

PATIENT
  Age: 58 Year
  Sex: Female
  Weight: 64 kg

DRUGS (10)
  1. STERCULIA [Concomitant]
     Active Substance: KARAYA GUM
     Dosage: 3 DOSAGE FORMS DAILY; 3 TEASPOONS PER DAY
     Dates: start: 20150924
  2. LANSOPRAZOLE. [Concomitant]
     Active Substance: LANSOPRAZOLE
     Dosage: 2 DOSAGE FORMS DAILY;
     Dates: start: 20150608
  3. HYOSCINE BUTYLBROMIDE [Concomitant]
     Active Substance: BUTYLSCOPOLAMINE
     Dosage: 6 DOSAGE FORMS DAILY; AS ADVISED BY SPECIALIST
     Dates: start: 20150608
  4. NORTRIPTYLINE [Concomitant]
     Active Substance: NORTRIPTYLINE
     Dosage: 3 DOSAGE FORMS DAILY; EACH NIGHT AS DIRECTED
     Dates: start: 20150608
  5. PARACETAMOL [Concomitant]
     Active Substance: ACETAMINOPHEN
     Indication: PAIN
     Dosage: 1 OR 2 UP TO FOUR TIMES DAILY
     Dates: start: 20150608
  6. IBUPROFEN. [Concomitant]
     Active Substance: IBUPROFEN
     Dosage: 2 DOSAGE FORMS DAILY; WITH FOOD
     Dates: start: 20151215, end: 20160112
  7. PROPRANOLOL [Concomitant]
     Active Substance: PROPRANOLOL\PROPRANOLOL HYDROCHLORIDE
     Dosage: 3 DOSAGE FORMS DAILY;
     Dates: start: 20150707
  8. CLONIDINE. [Concomitant]
     Active Substance: CLONIDINE
     Dosage: 2 DOSAGE FORMS DAILY;
     Dates: start: 20150608, end: 20160204
  9. NARATRIPTAN [Concomitant]
     Active Substance: NARATRIPTAN HYDROCHLORIDE
     Dosage: TAKE ONE AS DIRECTED
     Dates: start: 20150608
  10. TOPIRAMATE. [Suspect]
     Active Substance: TOPIRAMATE
     Dates: start: 20150608

REACTIONS (4)
  - Pain [Unknown]
  - Hepatic enzyme increased [Unknown]
  - Drug-induced liver injury [Recovering/Resolving]
  - Fatigue [Unknown]

NARRATIVE: CASE EVENT DATE: 201512
